FAERS Safety Report 21408976 (Version 1)
Quarter: 2022Q4

REPORT INFORMATION
  Report Type: Spontaneous
  Country: US (occurrence: US)
  Receive Date: 20221004
  Receipt Date: 20221004
  Transmission Date: 20230112
  Serious: No
  Sender: FDA-Public Use
  Company Number: US-SA-SAC20220930001174

PATIENT
  Sex: Female
  Weight: 88.45 kg

DRUGS (9)
  1. DUPIXENT [Suspect]
     Active Substance: DUPILUMAB
     Indication: Illness
     Dosage: 1 PEN UNDER THE SKIN, QOW
     Route: 058
  2. METOPROLOL [Concomitant]
     Active Substance: METOPROLOL
  3. CEPHALEXIN [Concomitant]
     Active Substance: CEPHALEXIN
  4. HYDROCHLOROTHIAZIDE\TRIAMTERENE [Concomitant]
     Active Substance: HYDROCHLOROTHIAZIDE\TRIAMTERENE
  5. PREMARIN [Concomitant]
     Active Substance: ESTROGENS, CONJUGATED
  6. ALBUTEROL SULFATE [Concomitant]
     Active Substance: ALBUTEROL SULFATE
  7. TACROLIMUS [Concomitant]
     Active Substance: TACROLIMUS
  8. HYDROCORTISONE [Concomitant]
     Active Substance: HYDROCORTISONE
  9. TRIAMCINOLONE ACETONIDE [Concomitant]
     Active Substance: TRIAMCINOLONE ACETONIDE

REACTIONS (1)
  - Injection site swelling [Unknown]
